FAERS Safety Report 13644045 (Version 1)
Quarter: 2017Q2

REPORT INFORMATION
  Report Type: Spontaneous
  Country: US (occurrence: US)
  Receive Date: 20170612
  Receipt Date: 20170612
  Transmission Date: 20170830
  Serious: Yes (Other)
  Sender: FDA-Public Use
  Company Number: US-CELGENEUS-USA-2015116248

PATIENT

DRUGS (3)
  1. VIDAZA [Suspect]
     Active Substance: AZACITIDINE
     Indication: MYELODYSPLASTIC SYNDROME
     Dosage: 75 MILLIGRAM/SQ. METER
     Route: 065
  2. VOSAROXIN [Suspect]
     Active Substance: VOSAROXIN
     Indication: MYELODYSPLASTIC SYNDROME
     Dosage: 50 MILLIGRAM/SQ. METER
     Route: 065
  3. VOSAROXIN [Suspect]
     Active Substance: VOSAROXIN
     Dosage: 34 MILLIGRAM/SQ. METER
     Route: 065

REACTIONS (11)
  - Febrile neutropenia [Unknown]
  - Sepsis [Unknown]
  - Mucosal inflammation [Unknown]
  - Haemorrhage [Unknown]
  - Neutropenia [Unknown]
  - Myelodysplastic syndrome [Unknown]
  - Colitis [Unknown]
  - Dysphagia [Unknown]
  - Infection [Unknown]
  - Hyperbilirubinaemia [Unknown]
  - Pyrexia [Unknown]
